FAERS Safety Report 5892673-1 (Version None)
Quarter: 2008Q3

REPORT INFORMATION
  Report Type: 
  Country: None (occurrence: None)
  Receive Date: 20080923
  Receipt Date: 20080916
  Transmission Date: 20090109
  Serious: Yes (Other)
  Sender: FDA-Public Use
  Company Number: PHHY2008BR17543

PATIENT
  Age: 9 Year
  Sex: Male

DRUGS (2)
  1. TEGRETOL [Suspect]
     Dosage: 200 MG, UNK
  2. CARBAMAZEPINE [Suspect]

REACTIONS (3)
  - AMNESIA [None]
  - CONVULSION [None]
  - POSTURE ABNORMAL [None]
